FAERS Safety Report 23288700 (Version 8)
Quarter: 2024Q3

REPORT INFORMATION
  Report Type: Spontaneous
  Country: US (occurrence: US)
  Receive Date: 20231212
  Receipt Date: 20240820
  Transmission Date: 20241017
  Serious: Yes (Other)
  Sender: SANOFI AVENTIS
  Company Number: US-SA-SAC20231206001573

PATIENT
  Age: 3 Year
  Sex: Male

DRUGS (10)
  1. ALPROLIX [Suspect]
     Active Substance: EFTRENONACOG ALFA
     Indication: Haemorrhage
     Dosage: 1600 U (+/-10%) OR 1700 UNITS , QW FOR ALL BLEEDS
     Route: 042
  2. ALPROLIX [Suspect]
     Active Substance: EFTRENONACOG ALFA
     Indication: Haemorrhage
     Dosage: 1600 U (+/-10%) OR 1700 UNITS , QW FOR ALL BLEEDS
     Route: 042
  3. ALPROLIX [Suspect]
     Active Substance: EFTRENONACOG ALFA
     Dosage: 1600 U (+/-10%) OR 1700 UNITS , PRN FOR ALL BLEEDS
     Route: 042
  4. ALPROLIX [Suspect]
     Active Substance: EFTRENONACOG ALFA
     Dosage: 1600 U (+/-10%) OR 1700 UNITS , PRN FOR ALL BLEEDS
     Route: 042
  5. ALPROLIX [Suspect]
     Active Substance: EFTRENONACOG ALFA
     Dosage: 1566 U; EVERY 7 TO 10 DAYS
     Route: 042
  6. ALPROLIX [Suspect]
     Active Substance: EFTRENONACOG ALFA
     Dosage: 1566 U; EVERY 7 TO 10 DAYS
     Route: 042
  7. ALPROLIX [Suspect]
     Active Substance: EFTRENONACOG ALFA
     Dosage: 1566 IU, PRN
     Route: 042
  8. ALPROLIX [Suspect]
     Active Substance: EFTRENONACOG ALFA
     Dosage: 1566 IU, PRN
     Route: 042
  9. ALPROLIX [Suspect]
     Active Substance: EFTRENONACOG ALFA
     Dosage: INFUSE 2000 UNITS (+/-10%) EVERY 7 TO 10 DAYS AND AS NEEDED
     Route: 065
  10. ALPROLIX [Suspect]
     Active Substance: EFTRENONACOG ALFA
     Dosage: INFUSE 2000 UNITS (+/-10%) EVERY 7 TO 10 DAYS AND AS NEEDED
     Route: 065

REACTIONS (7)
  - Muscle haemorrhage [Unknown]
  - Limb injury [Unknown]
  - Contusion [Unknown]
  - Haemorrhage [Recovered/Resolved]
  - Gait disturbance [Unknown]
  - Haemorrhage [Unknown]
  - Pharyngitis [Unknown]

NARRATIVE: CASE EVENT DATE: 20231117
